FAERS Safety Report 7809598-4 (Version None)
Quarter: 2011Q4

REPORT INFORMATION
  Report Type: 
  Country: None (occurrence: None)
  Receive Date: 20111012
  Receipt Date: 20110912
  Transmission Date: 20120403
  Serious: Yes (Other)
  Sender: FDA-Public Use
  Company Number: JP-SANOFI-AVENTIS-2011SA057264

PATIENT
  Age: 77 Year
  Sex: Female

DRUGS (5)
  1. ANTIINFLAMMATORY/ANTIRHEUMATIC NON-STEROIDS [Suspect]
     Indication: SPINAL COMPRESSION FRACTURE
     Route: 065
  2. INSULIN GLULISINE [Suspect]
     Dosage: DOSE REGIMEN: 4 UNIT IN MORNING, 4 UNIT IN DAYTIME AND 4 UNIT IN EVENING. DOSE:4 UNIT(S)
     Route: 065
     Dates: start: 20101004, end: 20101024
  3. INSULIN GLULISINE [Suspect]
     Dosage: DOSE REGIMEN: 6 UNIT IN MORNING, 5 UNIT IN DAYTIME AND 5 UNIT IN EVENING.
     Route: 065
     Dates: start: 20101025
  4. LANTUS [Concomitant]
     Dosage: 5 UNITS AT BEDTIME DOSE:5 UNIT(S)
     Route: 048
  5. INSULIN HUMAN [Concomitant]
     Dosage: 6 UNITS IN THE MORNING, 5 UNITS DURING DAYTIME AND 5 UNITS IN THE EVENING
     Route: 048
     Dates: end: 20101003

REACTIONS (2)
  - ANAEMIA [None]
  - SPINAL COMPRESSION FRACTURE [None]
